FAERS Safety Report 14947917 (Version 1)
Quarter: 2018Q2

REPORT INFORMATION
  Report Type: Spontaneous
  Country: US (occurrence: US)
  Receive Date: 20180508
  Receipt Date: 20180508
  Transmission Date: 20180711
  Serious: Yes (Hospitalization)
  Sender: FDA-Public Use
  Company Number: None

PATIENT
  Age: 64 Year
  Sex: Male

DRUGS (2)
  1. SIROLIMUS. [Suspect]
     Active Substance: SIROLIMUS
     Indication: LIVER TRANSPLANT
     Route: 048
     Dates: start: 20170208
  2. SIROLIMUS. [Suspect]
     Active Substance: SIROLIMUS
     Indication: LIVER TRANSPLANT
     Dates: start: 20170208

REACTIONS (2)
  - Splenic rupture [None]
  - Fall [None]
